FAERS Safety Report 8043637-3 (Version None)
Quarter: 2012Q1

REPORT INFORMATION
  Report Type: 
  Country: None (occurrence: None)
  Receive Date: 20120112
  Receipt Date: 20120103
  Transmission Date: 20120608
  Serious: Yes (Hospitalization)
  Sender: FDA-Public Use
  Company Number: IT-ASTRAZENECA-2012SE00467

PATIENT
  Age: 26667 Day
  Sex: Male

DRUGS (9)
  1. LUCEN [Suspect]
     Indication: GASTRITIS
     Dosage: GASTRO-RESISTANT TABLETS 20 MG DAILY
     Route: 048
     Dates: start: 20081001, end: 20111108
  2. SPIRONOLACTONE [Concomitant]
     Route: 048
  3. OMEGA POLYENE [Concomitant]
     Route: 048
  4. TICLOPIDINE HYDROCHLORIDE [Suspect]
     Indication: CAROTID ARTERY STENOSIS
     Route: 048
     Dates: start: 20080601, end: 20111115
  5. POTASSIUM CHLORIDE [Concomitant]
     Route: 048
  6. LERCANIDIPINE [Concomitant]
  7. RAMIPRIL [Concomitant]
     Route: 048
  8. SENNA (LEAVES) [Concomitant]
     Dosage: MEDICINAL PLANT AS REQUIRED
  9. FUROSEMIDE [Concomitant]
     Route: 048

REACTIONS (1)
  - DRUG RASH WITH EOSINOPHILIA AND SYSTEMIC SYMPTOMS [None]
